FAERS Safety Report 11748170 (Version 2)
Quarter: 2015Q4

REPORT INFORMATION
  Report Type: Report from Study
  Country: US (occurrence: US)
  Receive Date: 20151117
  Receipt Date: 20151222
  Transmission Date: 20160304
  Serious: Yes (Other)
  Sender: FDA-Public Use
  Company Number: US-TEVA-610074USA

PATIENT
  Age: 10 Year
  Sex: Male

DRUGS (3)
  1. CLOZAPINE. [Suspect]
     Active Substance: CLOZAPINE
     Indication: POST-TRAUMATIC STRESS DISORDER
     Dosage: 25 MILLIGRAM DAILY; HS
     Route: 048
     Dates: end: 20151112
  2. CLOZAPINE. [Suspect]
     Active Substance: CLOZAPINE
     Dosage: 50 MILLIGRAM DAILY; AM
     Route: 048
     Dates: end: 20151112
  3. LITHIUM. [Concomitant]
     Active Substance: LITHIUM

REACTIONS (3)
  - Granulocytopenia [Recovered/Resolved]
  - Product use issue [Unknown]
  - Off label use [Unknown]

NARRATIVE: CASE EVENT DATE: 20151104
